FAERS Safety Report 7465849 (Version 7)
Quarter: 2012Q4

REPORT INFORMATION
  Report Type: Report from Study
  Country: ES (occurrence: ES)
  Receive Date: 20100712
  Receipt Date: 20121221
  Transmission Date: 20130627
  Serious: Yes (Hospitalization)
  Sender: FDA-Public Use
  Company Number: ES-ABBOTT-10P-144-0654807-00

PATIENT
  Age: 55 Year
  Sex: Female
  Weight: 49 kg

DRUGS (4)
  1. HUMIRA [Suspect]
     Indication: CROHN^S DISEASE
     Route: 058
     Dates: start: 20090713
  2. AMOXICILLIN [Concomitant]
     Indication: PRODUCT USED FOR UNKNOWN INDICATION
     Route: 048
     Dates: start: 20100526, end: 20100602
  3. URBASON [Concomitant]
     Indication: CROHN^S DISEASE
     Dates: start: 20100324
  4. MESALAZINE [Concomitant]
     Indication: CROHN^S DISEASE
     Dates: start: 197907

REACTIONS (1)
  - Crohn^s disease [Not Recovered/Not Resolved]
